FAERS Safety Report 21578700 (Version 4)
Quarter: 2025Q4

REPORT INFORMATION
  Report Type: Spontaneous
  Country: EU (occurrence: EU)
  Receive Date: 20221110
  Receipt Date: 20251110
  Transmission Date: 20260117
  Serious: Yes (Other)
  Sender: MYLAN
  Company Number: EU-ORGANON-O2208ITA000687

PATIENT
  Age: 86 Year
  Sex: Female

DRUGS (36)
  1. CANDESARTAN CILEXETIL\HYDROCHLOROTHIAZIDE [Suspect]
     Active Substance: CANDESARTAN CILEXETIL\HYDROCHLOROTHIAZIDE
     Indication: Product used for unknown indication
     Dosage: UNK
  2. CANDESARTAN CILEXETIL\HYDROCHLOROTHIAZIDE [Suspect]
     Active Substance: CANDESARTAN CILEXETIL\HYDROCHLOROTHIAZIDE
     Dosage: UNK
     Route: 065
  3. CANDESARTAN CILEXETIL\HYDROCHLOROTHIAZIDE [Suspect]
     Active Substance: CANDESARTAN CILEXETIL\HYDROCHLOROTHIAZIDE
     Dosage: UNK
     Route: 065
  4. CANDESARTAN CILEXETIL\HYDROCHLOROTHIAZIDE [Suspect]
     Active Substance: CANDESARTAN CILEXETIL\HYDROCHLOROTHIAZIDE
     Dosage: UNK
  5. BIMATOPROST\TIMOLOL [Suspect]
     Active Substance: BIMATOPROST\TIMOLOL
     Indication: Product used for unknown indication
     Dosage: UNK
  6. BIMATOPROST\TIMOLOL [Suspect]
     Active Substance: BIMATOPROST\TIMOLOL
     Dosage: UNK
     Route: 031
  7. BIMATOPROST\TIMOLOL [Suspect]
     Active Substance: BIMATOPROST\TIMOLOL
     Dosage: UNK
     Route: 031
  8. BIMATOPROST\TIMOLOL [Suspect]
     Active Substance: BIMATOPROST\TIMOLOL
     Dosage: UNK
  9. FEBUXOSTAT [Suspect]
     Active Substance: FEBUXOSTAT
     Indication: Product used for unknown indication
     Dosage: UNK
  10. FEBUXOSTAT [Suspect]
     Active Substance: FEBUXOSTAT
     Dosage: UNK
     Route: 065
  11. FEBUXOSTAT [Suspect]
     Active Substance: FEBUXOSTAT
     Dosage: UNK
     Route: 065
  12. FEBUXOSTAT [Suspect]
     Active Substance: FEBUXOSTAT
     Dosage: UNK
  13. ONDANSETRON [Suspect]
     Active Substance: ONDANSETRON
     Indication: Constipation
     Dosage: UNK
  14. ONDANSETRON [Suspect]
     Active Substance: ONDANSETRON
     Indication: Nausea
     Dosage: UNK
     Route: 065
  15. ONDANSETRON [Suspect]
     Active Substance: ONDANSETRON
     Dosage: UNK
     Route: 065
  16. ONDANSETRON [Suspect]
     Active Substance: ONDANSETRON
     Dosage: UNK
  17. SIMVASTATIN [Suspect]
     Active Substance: SIMVASTATIN
     Indication: Product used for unknown indication
     Dosage: UNK
  18. SIMVASTATIN [Suspect]
     Active Substance: SIMVASTATIN
     Dosage: UNK
     Route: 048
  19. SIMVASTATIN [Suspect]
     Active Substance: SIMVASTATIN
     Dosage: UNK
     Route: 048
  20. SIMVASTATIN [Suspect]
     Active Substance: SIMVASTATIN
     Dosage: UNK
  21. DIAZEPAM [Suspect]
     Active Substance: DIAZEPAM
     Indication: Product used for unknown indication
     Dosage: 5 MILLIGRAM
  22. DIAZEPAM [Suspect]
     Active Substance: DIAZEPAM
     Dosage: 5 MILLIGRAM
     Route: 065
  23. DIAZEPAM [Suspect]
     Active Substance: DIAZEPAM
     Dosage: 5 MILLIGRAM
     Route: 065
  24. DIAZEPAM [Suspect]
     Active Substance: DIAZEPAM
     Dosage: 5 MILLIGRAM
  25. BISOPROLOL [Suspect]
     Active Substance: BISOPROLOL
     Indication: Product used for unknown indication
     Dosage: UNK
  26. BISOPROLOL [Suspect]
     Active Substance: BISOPROLOL
     Dosage: UNK
     Route: 065
  27. BISOPROLOL [Suspect]
     Active Substance: BISOPROLOL
     Dosage: UNK
     Route: 065
  28. BISOPROLOL [Suspect]
     Active Substance: BISOPROLOL
     Dosage: UNK
  29. CLEBOPRIDE [Suspect]
     Active Substance: CLEBOPRIDE
     Indication: Nausea
     Dosage: UNK
  30. CLEBOPRIDE [Suspect]
     Active Substance: CLEBOPRIDE
     Indication: Constipation
     Dosage: UNK
     Route: 065
  31. CLEBOPRIDE [Suspect]
     Active Substance: CLEBOPRIDE
     Dosage: UNK
     Route: 065
  32. CLEBOPRIDE [Suspect]
     Active Substance: CLEBOPRIDE
     Dosage: UNK
  33. SENNA LEAF [Suspect]
     Active Substance: SENNA LEAF
     Indication: Nausea
     Dosage: UNK
  34. SENNA LEAF [Suspect]
     Active Substance: SENNA LEAF
     Indication: Constipation
     Dosage: UNK
     Route: 065
  35. SENNA LEAF [Suspect]
     Active Substance: SENNA LEAF
     Dosage: UNK
     Route: 065
  36. SENNA LEAF [Suspect]
     Active Substance: SENNA LEAF
     Dosage: UNK

REACTIONS (12)
  - Sight disability [Unknown]
  - Agitation [Unknown]
  - Affect lability [Unknown]
  - Language disorder [Unknown]
  - Pyrexia [Recovered/Resolved]
  - Insomnia [Unknown]
  - Gait disturbance [Unknown]
  - Speech disorder [Recovered/Resolved]
  - Abdominal pain [Recovered/Resolved]
  - Constipation [Recovered/Resolved]
  - Nausea [Unknown]
  - Off label use [Unknown]
